FAERS Safety Report 11403816 (Version 1)
Quarter: 2015Q3

REPORT INFORMATION
  Report Type: Report from Study
  Country: FR (occurrence: FR)
  Receive Date: 20150821
  Receipt Date: 20150821
  Transmission Date: 20151125
  Serious: Yes (Life-Threatening)
  Sender: FDA-Public Use
  Company Number: FR-AUROBINDO-AUR-APL-2015-07154

PATIENT
  Age: 39 Year
  Sex: Female

DRUGS (1)
  1. CITALOPRAM [Suspect]
     Active Substance: CITALOPRAM HYDROBROMIDE
     Indication: PRODUCT USED FOR UNKNOWN INDICATION
     Route: 065

REACTIONS (8)
  - Serotonin syndrome [Unknown]
  - Hyperhidrosis [Unknown]
  - Seizure [Unknown]
  - Malaise [Unknown]
  - Cardio-respiratory arrest [Unknown]
  - Chills [Unknown]
  - Overdose [Unknown]
  - Agitation [Unknown]
